FAERS Safety Report 17680343 (Version 1)
Quarter: 2020Q2

REPORT INFORMATION
  Report Type: Spontaneous
  Country: US (occurrence: US)
  Receive Date: 20200417
  Receipt Date: 20200417
  Transmission Date: 20200714
  Serious: Yes (Other)
  Sender: FDA-Public Use
  Company Number: None

PATIENT
  Age: 83 Year
  Sex: Female
  Weight: 58 kg

DRUGS (1)
  1. PACLITAXEL. [Suspect]
     Active Substance: PACLITAXEL
     Indication: NEOPLASM MALIGNANT
     Dosage: ?          OTHER FREQUENCY:WEEKLY;?
     Route: 042
     Dates: start: 20200116, end: 20200326

REACTIONS (6)
  - Chest pain [None]
  - Arthralgia [None]
  - Dyspnoea [None]
  - Back pain [None]
  - Oxygen saturation decreased [None]
  - Blood pressure decreased [None]

NARRATIVE: CASE EVENT DATE: 20200326
